FAERS Safety Report 14858820 (Version 3)
Quarter: 2020Q1

REPORT INFORMATION
  Report Type: Spontaneous
  Country: FR (occurrence: FR)
  Receive Date: 20180508
  Receipt Date: 20200310
  Transmission Date: 20200409
  Serious: Yes (Congenital Anomaly, Other)
  Sender: FDA-Public Use
  Company Number: PHHY2014FR185061

PATIENT
  Sex: Female
  Weight: 2.62 kg

DRUGS (3)
  1. FOLIC ACID. [Suspect]
     Active Substance: FOLIC ACID
     Indication: FOETAL EXPOSURE DURING PREGNANCY
     Dosage: UNK
     Route: 064
     Dates: start: 19960409, end: 19970117
  2. TEGRETOL [Suspect]
     Active Substance: CARBAMAZEPINE
     Indication: FOETAL EXPOSURE DURING PREGNANCY
     Dosage: MATERNAL DOSE: UNKNOWN
     Route: 064
     Dates: start: 1996
  3. DEPAKINE CHRONO [Suspect]
     Active Substance: VALPROATE SODIUM
     Indication: FOETAL EXPOSURE DURING PREGNANCY
     Dosage: 1250 MG, QD
     Route: 064
     Dates: start: 19970117

REACTIONS (62)
  - Limb malformation [Unknown]
  - Cognitive disorder [Unknown]
  - Psychomotor retardation [Unknown]
  - Motor developmental delay [Unknown]
  - Congenital hand malformation [Unknown]
  - Synovial cyst [Unknown]
  - Speech disorder developmental [Not Recovered/Not Resolved]
  - Psychomotor hyperactivity [Not Recovered/Not Resolved]
  - Developmental delay [Not Recovered/Not Resolved]
  - Anxiety [Not Recovered/Not Resolved]
  - Congenital scoliosis [Recovered/Resolved]
  - Tenosynovitis [Unknown]
  - Nasopharyngitis [Unknown]
  - Angina pectoris [Unknown]
  - Educational problem [Unknown]
  - Memory impairment [Unknown]
  - Scoliosis [Recovered/Resolved]
  - Anxiety [Not Recovered/Not Resolved]
  - Bronchitis [Unknown]
  - Pharyngeal disorder [Unknown]
  - Kyphosis congenital [Unknown]
  - Visual impairment [Unknown]
  - Speech disorder developmental [Not Recovered/Not Resolved]
  - Fatigue [Unknown]
  - Intellectual disability [Not Recovered/Not Resolved]
  - Nasal disorder [Unknown]
  - Visual impairment [Unknown]
  - Disturbance in attention [Unknown]
  - Cough [Unknown]
  - Respiratory disorder neonatal [Unknown]
  - Ear disorder [Unknown]
  - Rhinitis [Unknown]
  - Adjustment disorder [Unknown]
  - Ear infection [Unknown]
  - Language disorder [Unknown]
  - Foot deformity [Unknown]
  - Congenital hypothyroidism [Unknown]
  - Intellectual disability [Unknown]
  - Anodontia [Unknown]
  - Sleep disorder [Unknown]
  - Dysmorphism [Unknown]
  - Foot deformity [Unknown]
  - Ill-defined disorder [Unknown]
  - Congenital cyst [Unknown]
  - Pharyngitis [Unknown]
  - Back disorder [Unknown]
  - Fear [Unknown]
  - Learning disorder [Unknown]
  - Congenital foot malformation [Unknown]
  - Disturbance in attention [Unknown]
  - Intellectual disability [Not Recovered/Not Resolved]
  - Behaviour disorder [Not Recovered/Not Resolved]
  - Strabismus congenital [Unknown]
  - Bronchopneumopathy [Unknown]
  - Mental disorder [Unknown]
  - Motor dysfunction [Unknown]
  - Impulsive behaviour [Unknown]
  - Dysmorphism [Unknown]
  - Lordosis [Unknown]
  - Dyschromatopsia [Unknown]
  - Echolalia [Unknown]
  - Foetal exposure during pregnancy [Unknown]

NARRATIVE: CASE EVENT DATE: 1997
